FAERS Safety Report 5230802-3 (Version None)
Quarter: 2007Q1

REPORT INFORMATION
  Report Type: 
  Country: None (occurrence: None)
  Receive Date: 20070202
  Receipt Date: 20070117
  Transmission Date: 20070707
  Serious: Yes (Hospitalization, Other)
  Sender: FDA-Public Use
  Company Number: DSA_29253_2007

PATIENT
  Age: 47 Year
  Sex: Male

DRUGS (12)
  1. NIFEDIPINE [Suspect]
     Indication: HYPERTENSION
     Dosage: 30 MG Q12HR
     Dates: end: 20050501
  2. LOPINAVIR/RITONAVIR [Suspect]
     Indication: HIV INFECTION
     Dosage: 3 DF Q12HR
     Dates: start: 20020101, end: 20050301
  3. NIFEDIPINE [Suspect]
     Indication: HYPERTENSION
     Dosage: 30 MG Q12HR
     Dates: start: 20050501, end: 20050101
  4. NIFEDIPINE [Suspect]
     Indication: HYPERTENSION
     Dates: start: 20050101, end: 20050101
  5. LOPINAVIR/RITONAVIR [Suspect]
     Indication: HIV INFECTION
     Dosage: DF
     Dates: start: 20050501, end: 20050101
  6. LOPINAVIR/RITONAVIR [Suspect]
     Indication: HIV INFECTION
     Dosage: DF
     Dates: start: 20050601
  7. DOXAZOSIN MESYLATE [Concomitant]
  8. FUROSEMIDE [Concomitant]
  9. STAVUDINE [Concomitant]
  10. LAMIVUDINE [Concomitant]
  11. ENALAPRIL [Concomitant]
  12. LOSARTAN POTASSIUM [Concomitant]

REACTIONS (6)
  - CD4 LYMPHOCYTES DECREASED [None]
  - DRUG INTERACTION [None]
  - GLOMERULONEPHRITIS MEMBRANOPROLIFERATIVE [None]
  - HYPOTENSION [None]
  - RENAL FAILURE ACUTE [None]
  - RENAL FAILURE CHRONIC [None]
